FAERS Safety Report 8368020-2 (Version None)
Quarter: 2012Q2

REPORT INFORMATION
  Report Type: 
  Country: None (occurrence: None)
  Receive Date: 20120517
  Receipt Date: 20120507
  Transmission Date: 20120825
  Serious: Yes (Hospitalization)
  Sender: FDA-Public Use
  Company Number: NL-BAXTER-2012BAX005473

PATIENT
  Age: 70 Year
  Sex: Male

DRUGS (6)
  1. EXTRANEAL [Suspect]
     Route: 033
     Dates: start: 20090817
  2. INSULIN [Concomitant]
     Route: 065
  3. PHYSIONEAL 40 GLUCOSE 2.27% W/V / 22.7 MG/ML [Suspect]
     Route: 033
     Dates: start: 20090817
  4. VITAMIN D [Concomitant]
     Route: 065
  5. NUTRINEAL [Suspect]
     Route: 033
     Dates: start: 20090817
  6. EPOGEN [Concomitant]
     Route: 065

REACTIONS (1)
  - UMBILICAL HERNIA [None]
